FAERS Safety Report 12905156 (Version 1)
Quarter: 2016Q4

REPORT INFORMATION
  Report Type: Spontaneous
  Country: US (occurrence: US)
  Receive Date: 20161102
  Receipt Date: 20161102
  Transmission Date: 20170207
  Serious: No
  Sender: FDA-Public Use
  Company Number: US-JNJFOC-20161019319

PATIENT
  Age: 70 Year
  Sex: Female
  Weight: 81.65 kg

DRUGS (2)
  1. ZYRTEC [Suspect]
     Active Substance: CETIRIZINE HYDROCHLORIDE
     Route: 048
  2. ZYRTEC [Suspect]
     Active Substance: CETIRIZINE HYDROCHLORIDE
     Indication: SINUS DISORDER
     Dosage: 1/2 TABLET OF 10MG
     Route: 048
     Dates: start: 20161018, end: 20161018

REACTIONS (10)
  - Adverse event [Recovering/Resolving]
  - Product use issue [Recovering/Resolving]
  - Dyspnoea [Recovering/Resolving]
  - Abdominal discomfort [Recovering/Resolving]
  - Product packaging issue [Unknown]
  - Dizziness [Recovering/Resolving]
  - Drug hypersensitivity [Recovering/Resolving]
  - Off label use [Recovering/Resolving]
  - Blood pressure increased [Recovering/Resolving]
  - Skin odour abnormal [Recovering/Resolving]

NARRATIVE: CASE EVENT DATE: 20161018
